FAERS Safety Report 5891674-7 (Version None)
Quarter: 2008Q3

REPORT INFORMATION
  Report Type: 
  Country: None (occurrence: None)
  Receive Date: 20080922
  Receipt Date: 20080911
  Transmission Date: 20090109
  Serious: Yes (Hospitalization)
  Sender: FDA-Public Use
  Company Number: FR-BRISTOL-MYERS SQUIBB COMPANY-14339931

PATIENT
  Age: 36 Year
  Sex: Female

DRUGS (10)
  1. ENDOXAN [Suspect]
     Indication: POLYARTERITIS NODOSA
     Dosage: 1 DF: 1 DOSE (UNITS NOT SPECIFIED)
     Route: 042
     Dates: start: 20070920, end: 20080219
  2. CORTANCYL [Concomitant]
  3. ALDACTONE [Concomitant]
  4. ESCITALOPRAM [Concomitant]
     Dates: start: 20070701
  5. DIFFU-K [Concomitant]
  6. ACTONEL [Concomitant]
  7. PLAVIX [Concomitant]
  8. MOPRAL [Concomitant]
  9. EUPRESSYL [Concomitant]
  10. LERCAN [Concomitant]

REACTIONS (2)
  - CONDITION AGGRAVATED [None]
  - DEPRESSION [None]
